FAERS Safety Report 8798680 (Version 2)
Quarter: 2016Q4

REPORT INFORMATION
  Report Type: Spontaneous
  Country: US (occurrence: US)
  Receive Date: 20120920
  Receipt Date: 20161025
  Transmission Date: 20170207
  Serious: Yes (Hospitalization, Disabling, Other)
  Sender: FDA-Public Use
  Company Number: US-009507513-1203USA03356

PATIENT
  Sex: Female

DRUGS (3)
  1. CALTRATE WITH VITAMIN D [Concomitant]
     Active Substance: CALCIUM CARBONATE\CHOLECALCIFEROL
     Dosage: 600 MG, BID
     Route: 065
  2. FOSAMAX [Suspect]
     Active Substance: ALENDRONATE SODIUM
     Indication: OSTEOPOROSIS
     Dosage: 70 MG, UNK
     Route: 048
     Dates: start: 200404, end: 201104
  3. FOSAMAX [Suspect]
     Active Substance: ALENDRONATE SODIUM
     Indication: OSTEOPOROSIS
     Dosage: 70 MG, QW
     Route: 048
     Dates: start: 20030617, end: 20110913

REACTIONS (31)
  - Femur fracture [Unknown]
  - Osteoporosis [Unknown]
  - Low turnover osteopathy [Unknown]
  - Tooth disorder [Unknown]
  - Device failure [Unknown]
  - Impaired healing [Unknown]
  - Pain in extremity [Unknown]
  - Foot fracture [Unknown]
  - Nervous system disorder [Unknown]
  - Astigmatism [Unknown]
  - Breast mass [Unknown]
  - Neuropathy peripheral [Unknown]
  - Hypertension [Unknown]
  - Back pain [Unknown]
  - Presbyopia [Unknown]
  - Hyperlipidaemia [Unknown]
  - Foot fracture [Unknown]
  - Postmenopausal haemorrhage [Unknown]
  - Uterine polyp [Unknown]
  - Blood cholesterol increased [Unknown]
  - Foot fracture [Unknown]
  - Myopia [Unknown]
  - Pinguecula [Unknown]
  - Uterine disorder [Unknown]
  - Osteopenia [Unknown]
  - Stress fracture [Unknown]
  - Vitamin D deficiency [Unknown]
  - Rib fracture [Unknown]
  - Femur fracture [Unknown]
  - Onychomycosis [Unknown]
  - Morton^s neuralgia [Unknown]

NARRATIVE: CASE EVENT DATE: 20040504
